FAERS Safety Report 8045810-7 (Version None)
Quarter: 2012Q1

REPORT INFORMATION
  Report Type: 
  Country: None (occurrence: None)
  Receive Date: 20120113
  Receipt Date: 20120111
  Transmission Date: 20120608
  Serious: Yes (Other)
  Sender: FDA-Public Use
  Company Number: US-ROCHE-794284

PATIENT
  Sex: Female
  Weight: 72.64 kg

DRUGS (1)
  1. ACCUTANE [Suspect]
     Indication: ACNE CYSTIC
     Dosage: DRUG INGESTED FOR EIGHT MONTHS IN 1996
     Route: 048
     Dates: start: 19950101, end: 19960101

REACTIONS (5)
  - IRRITABLE BOWEL SYNDROME [None]
  - DEPRESSION [None]
  - PHOTOSENSITIVITY REACTION [None]
  - INFLAMMATORY BOWEL DISEASE [None]
  - DRY SKIN [None]
